FAERS Safety Report 9844530 (Version 1)
Quarter: 2013Q4

REPORT INFORMATION
  Report Type: Spontaneous
  Country: US (occurrence: None)
  Receive Date: 20131224
  Receipt Date: 20131224
  Transmission Date: 20140711
  Serious: Yes (Other)
  Sender: FDA-Public Use
  Company Number: 45352

PATIENT
  Age: 60 Year
  Sex: Female
  Weight: 63.28 kg

DRUGS (10)
  1. GLASSIA [Suspect]
     Indication: ALPHA-1 ANTI-TRYPSIN DECREASED
     Route: 042
     Dates: start: 201202
  2. ACTONEL [Concomitant]
  3. SPIRIVA [Concomitant]
  4. FORADIL [Concomitant]
  5. PROAIR [Concomitant]
  6. SPRIOMOLACTONE [Concomitant]
  7. LISINOPRIL [Concomitant]
  8. PRAVASTATIN [Concomitant]
  9. MULTI-VITAMINS [Concomitant]
  10. OXYGEN [Concomitant]

REACTIONS (4)
  - Colitis [None]
  - Abdominal pain [None]
  - Diarrhoea [None]
  - Vomiting [None]
